FAERS Safety Report 9212543 (Version 1)
Quarter: 2013Q2

REPORT INFORMATION
  Report Type: Not Available
  Country: FR (occurrence: FR)
  Receive Date: 20130405
  Receipt Date: 20130405
  Transmission Date: 20140414
  Serious: Yes (Hospitalization)
  Sender: FDA-Public Use
  Company Number: FR-GE HEALTHCARE MEDICAL DIAGNOSTICS-OMPQ-PR-1303S-0410

PATIENT
  Age: 82 Year
  Sex: Female

DRUGS (5)
  1. OMNIPAQUE [Suspect]
     Indication: PRODUCT USED FOR UNKNOWN INDICATION
     Route: 042
     Dates: start: 20130307, end: 20130307
  2. OMNIPAQUE [Suspect]
     Indication: DIAGNOSTIC PROCEDURE
  3. PLAVIX [Concomitant]
  4. KARDEGIC [Concomitant]
  5. LOVENOX [Concomitant]

REACTIONS (1)
  - Hypotension [Recovered/Resolved]
